FAERS Safety Report 8173522-8 (Version None)
Quarter: 2012Q1

REPORT INFORMATION
  Report Type: 
  Country: None (occurrence: None)
  Receive Date: 20120224
  Receipt Date: 20120215
  Transmission Date: 20120608
  Serious: Yes (Other)
  Sender: FDA-Public Use
  Company Number: 130034

PATIENT
  Age: 65 Year
  Sex: Female

DRUGS (2)
  1. FOLIC ACID [Concomitant]
  2. METHOTREXATE [Suspect]
     Dosage: 0.8 ML INJECTION EVERY WEEK
     Dates: start: 20100501

REACTIONS (2)
  - MEDICATION ERROR [None]
  - PRODUCT QUALITY ISSUE [None]
